FAERS Safety Report 17575973 (Version 1)
Quarter: 2020Q1

REPORT INFORMATION
  Report Type: Report from Study
  Country: CN (occurrence: CN)
  Receive Date: 20200324
  Receipt Date: 20200324
  Transmission Date: 20200409
  Serious: Yes (Other)
  Sender: FDA-Public Use
  Company Number: CN-ACCORD-176504

PATIENT
  Age: 4 Month
  Sex: Male

DRUGS (12)
  1. CYCLOPHOSPHAMIDE/CYCLOPHOSPHAMIDE MONOHYDRATE [Suspect]
     Active Substance: CYCLOPHOSPHAMIDE
     Indication: PRODUCT USED FOR UNKNOWN INDICATION
     Dosage: TOTAL DOSE-100 MG/KG
     Route: 042
  2. GANCICLOVIR. [Concomitant]
     Active Substance: GANCICLOVIR
     Indication: ANTIVIRAL PROPHYLAXIS
     Dosage: FROM THE FIRST DAY OF CONDITIONING
  3. MICAFUNGIN/MICAFUNGIN SODIUM [Concomitant]
     Active Substance: MICAFUNGIN SODIUM
     Indication: PROPHYLAXIS
     Dosage: 4-6 MG/KG/D, FROM THE FIRST DAY OF CONDITIONING UNTIL NEUTROPHILS ENGRAFTMENT
  4. TACROLIMUS. [Suspect]
     Active Substance: TACROLIMUS
     Indication: PROPHYLAXIS AGAINST GRAFT VERSUS HOST DISEASE
  5. VORICONAZOLE. [Concomitant]
     Active Substance: VORICONAZOLE
     Indication: PROPHYLAXIS
     Dosage: FROM NEUTROPHIL ENGRAFTMENT UNTIL DAY +180
  6. SULFAMETHOXAZOLE/SULFAMETHOXAZOLE SODIUM [Concomitant]
     Active Substance: SULFAMETHOXAZOLE
     Indication: PROPHYLAXIS
     Dosage: TWICE A WEEK FROM THE TIME OF NEUTROPHIL ENGRAFTMENT UNTIL 6 MONTHS AFTER IMMUNE RECONSTITUTION
  7. CICLOSPORIN [Suspect]
     Active Substance: CYCLOSPORINE
     Indication: PROPHYLAXIS AGAINST GRAFT VERSUS HOST DISEASE
  8. FLUDARABINE [Suspect]
     Active Substance: FLUDARABINE PHOSPHATE
     Indication: PRODUCT USED FOR UNKNOWN INDICATION
     Dosage: 35 MG/M2/D OR 1.4 MG/KG/D BY I.V. FOR 5 DAYS (TOTAL DOSE, 175 MG/M2 OR 7 MG/KG),
     Route: 042
  9. ACICLOVIR [Concomitant]
     Active Substance: ACYCLOVIR
     Indication: PROPHYLAXIS
     Dosage: FROM DAY 0 UNTIL DAY +270
  10. MYCOPHENOLIC ACID. [Suspect]
     Active Substance: MYCOPHENOLIC ACID
     Indication: PROPHYLAXIS AGAINST GRAFT VERSUS HOST DISEASE
  11. BUSULFAN. [Suspect]
     Active Substance: BUSULFAN
     Indication: PRODUCT USED FOR UNKNOWN INDICATION
     Dosage: 1-1.2 MG/KG GIVEN INTRAVENOUSLY (I.V.) EVERY 6 HOURS FOR 4 DAYS (TOTAL DOSE, 16-19.2 MG/KG)
  12. IMMUNOGLOBULIN HUMAN NORMAL [Concomitant]
     Active Substance: HUMAN IMMUNOGLOBULIN G
     Dosage: EVERY 2 WEEKS STARTING ON DAY +1 POST-UCBT
     Route: 042

REACTIONS (2)
  - Cytomegalovirus viraemia [Recovered/Resolved]
  - Obliterative bronchiolitis [Recovered/Resolved]
